FAERS Safety Report 24347011 (Version 2)
Quarter: 2024Q4

REPORT INFORMATION
  Report Type: Spontaneous
  Country: IT (occurrence: IT)
  Receive Date: 20240921
  Receipt Date: 20241011
  Transmission Date: 20250114
  Serious: Yes (Hospitalization, Other)
  Sender: TEVA
  Company Number: IT-TEVA-VS-3244592

PATIENT
  Age: 72 Year
  Sex: Male
  Weight: 50 kg

DRUGS (10)
  1. AJOVY [Suspect]
     Active Substance: FREMANEZUMAB-VFRM
     Indication: Product used for unknown indication
     Dosage: COMPLETED THE FIRST YEAR OF AJOVY THERAPY IN DECEMBER 2023
     Route: 065
     Dates: start: 202301
  2. ASPIRIN DL-LYSINE [Concomitant]
     Active Substance: ASPIRIN DL-LYSINE
     Indication: Product used for unknown indication
     Route: 065
     Dates: start: 20240220
  3. REMERON [Concomitant]
     Active Substance: MIRTAZAPINE
     Indication: Product used for unknown indication
     Dosage: 1 TABLET IN THE EVENING
     Route: 065
  4. FOLIC ACID [Concomitant]
     Active Substance: FOLIC ACID
     Indication: Product used for unknown indication
     Dosage: 1 TABLET TWICE A WEEK
     Route: 065
  5. ASCORBIC ACID\CYANOCOBALAMIN\FOLIC ACID\NIACINAMIDE [Concomitant]
     Active Substance: ASCORBIC ACID\CYANOCOBALAMIN\FOLIC ACID\NIACINAMIDE
     Indication: Product used for unknown indication
     Dosage: 1 INTRAMUSCULAR VIAL PER MONTH
     Route: 030
  6. CHOLECALCIFEROL [Concomitant]
     Active Substance: CHOLECALCIFEROL
     Indication: Medical diet
     Dosage: 100,000 EVERY OTHER MONTH; FRACTIONAL DIET
     Route: 065
  7. ALMOTRIPTAN MALATE [Concomitant]
     Active Substance: ALMOTRIPTAN MALATE
     Indication: Headache
     Dosage: 1 TABLET
     Route: 065
  8. Riopan [Concomitant]
     Indication: Abdominal pain upper
     Dosage: AS NEEDED
     Route: 065
  9. PANTOPRAZOLE [Concomitant]
     Active Substance: PANTOPRAZOLE
     Indication: Product used for unknown indication
     Dosage: AT 8 AM
     Route: 065
  10. MIRTAZAPINE [Concomitant]
     Active Substance: MIRTAZAPINE
     Indication: Product used for unknown indication
     Dosage: 1/2 TABLET OF 30 MG AT 8 PM
     Route: 065

REACTIONS (7)
  - Cerebral haemorrhage [Unknown]
  - Aneurysm ruptured [Unknown]
  - Confusional state [Unknown]
  - Pulmonary arterial pressure increased [Unknown]
  - Epilepsy [Unknown]
  - Ventricular hypertrophy [Unknown]
  - Headache [Not Recovered/Not Resolved]

NARRATIVE: CASE EVENT DATE: 20240201
